FAERS Safety Report 4503207-8 (Version None)
Quarter: 2004Q4

REPORT INFORMATION
  Report Type: 
  Country: None (occurrence: None)
  Receive Date: 20041112
  Receipt Date: 20041028
  Transmission Date: 20050328
  Serious: Yes (Hospitalization, Disabling)
  Sender: FDA-Public Use
  Company Number: 2004UW06724

PATIENT
  Age: 44 Year
  Sex: Female
  Weight: 60.3 kg

DRUGS (2)
  1. IRESSA [Suspect]
     Indication: BREAST CANCER
     Dosage: 250 MG QD PO
     Route: 048
     Dates: start: 20040114, end: 20040319
  2. TAXOTERE [Suspect]
     Indication: BREAST CANCER
     Dosage: 36 MG/M2 WEEK IV
     Route: 042
     Dates: start: 20040114, end: 20040227

REACTIONS (5)
  - GINGIVAL BLEEDING [None]
  - HAEMATURIA [None]
  - HEPATIC FUNCTION ABNORMAL [None]
  - PNEUMONIA [None]
  - URINARY TRACT INFECTION [None]
